FAERS Safety Report 4471793-2 (Version None)
Quarter: 2004Q4

REPORT INFORMATION
  Report Type: 
  Country: None (occurrence: None)
  Receive Date: 20041007
  Receipt Date: 20040928
  Transmission Date: 20050328
  Serious: Yes (Other)
  Sender: FDA-Public Use
  Company Number: 2004233891DK

PATIENT
  Age: 43 Year
  Sex: Female

DRUGS (1)
  1. CABERGOLINE [Suspect]
     Indication: PARKINSON'S DISEASE
     Dosage: 4MG/DAY, ORAL
     Route: 048
     Dates: start: 20011101, end: 20040826

REACTIONS (2)
  - CARDIAC FAILURE [None]
  - MITRAL VALVE STENOSIS [None]
